FAERS Safety Report 8852488 (Version 3)
Quarter: 2012Q4

REPORT INFORMATION
  Report Type: 
  Country: US (occurrence: US)
  Receive Date: 20121022
  Receipt Date: 20121214
  Transmission Date: 20130627
  Serious: Yes (Other)
  Sender: FDA-Public Use
  Company Number: US-ASTRAZENECA-2012SE76040

PATIENT
  Age: 62 Year
  Sex: Female

DRUGS (2)
  1. NEXIUM [Suspect]
     Route: 048
  2. LEXAPRO [Concomitant]
     Indication: HEART RATE IRREGULAR

REACTIONS (7)
  - Convulsion [Unknown]
  - Tachycardia [Unknown]
  - Heart rate irregular [Unknown]
  - Bone loss [Unknown]
  - Osteoporosis [Unknown]
  - Malaise [Unknown]
  - Drug dose omission [Unknown]
